FAERS Safety Report 8470859-X (Version None)
Quarter: 2012Q2

REPORT INFORMATION
  Report Type: 
  Country: None (occurrence: None)
  Receive Date: 20120323
  Receipt Date: 20111012
  Transmission Date: 20120825
  Serious: Yes (Other)
  Sender: FDA-Public Use
  Company Number: 163-21880-11101454

PATIENT
  Age: 78 Year
  Sex: Female
  Weight: 68.0396 kg

DRUGS (12)
  1. BAYER (ACETYLSALIC ACID) (UNKNOWN) [Concomitant]
  2. AMLODIPINE [Concomitant]
  3. ISOSORBIDE (ISOSORBIDE) (UNKNOWN) [Concomitant]
  4. DEXAMETHASONE [Concomitant]
  5. NOVOLOG (INSULIN ASPART) (UNKNOWN) [Concomitant]
  6. OXYCODONE (OXYCODONE) (UNKNOWN) [Concomitant]
  7. SIMVASTATIN [Concomitant]
  8. LENALIDOMIDE [Suspect]
     Indication: MULTIPLE MYELOMA
     Dosage: 10 MG, DAILY X 21 / 28 DAYS, PO
     Route: 048
     Dates: start: 20110527
  9. NITROGLYCERIN [Concomitant]
  10. OMEPRAZOLE [Concomitant]
  11. CALCITRIOL (CALCITRIOL) (UNKNOWN) [Concomitant]
  12. LANTUS [Concomitant]

REACTIONS (1)
  - RENAL FAILURE [None]
